FAERS Safety Report 8298930-6 (Version None)
Quarter: 2012Q2

REPORT INFORMATION
  Report Type: 
  Country: None (occurrence: None)
  Receive Date: 20120419
  Receipt Date: 20120416
  Transmission Date: 20120825
  Serious: No
  Sender: FDA-Public Use
  Company Number: US-PFIZER INC-2012094181

PATIENT
  Sex: Female
  Weight: 48.98 kg

DRUGS (2)
  1. VICODIN [Concomitant]
     Dosage: UNK
  2. PREMARIN [Suspect]
     Indication: HORMONE REPLACEMENT THERAPY
     Dosage: 0.625 MG, 1X/DAY
     Route: 048
     Dates: start: 20000801

REACTIONS (2)
  - MALAISE [None]
  - PRODUCT TASTE ABNORMAL [None]
